FAERS Safety Report 17441814 (Version 1)
Quarter: 2020Q1

REPORT INFORMATION
  Report Type: Spontaneous
  Country: US (occurrence: US)
  Receive Date: 20200220
  Receipt Date: 20200220
  Transmission Date: 20200409
  Serious: No
  Sender: FDA-Public Use
  Company Number: US-AKRON, INC.-2080725

PATIENT
  Sex: Male

DRUGS (1)
  1. HYDROCORTISONE + ACETIC ACID OTIC SOLUTION [Suspect]
     Active Substance: ACETIC ACID\HYDROCORTISONE
     Indication: EAR INFECTION
     Route: 001

REACTIONS (6)
  - Ear haemorrhage [Recovered/Resolved]
  - Ear swelling [Recovered/Resolved]
  - Lymphadenopathy [Recovered/Resolved]
  - Insomnia [Recovered/Resolved]
  - Pruritus [Recovered/Resolved]
  - Scab [Recovered/Resolved]
